FAERS Safety Report 8716302 (Version 3)
Quarter: 2017Q1

REPORT INFORMATION
  Report Type: Spontaneous
  Country: BR (occurrence: BR)
  Receive Date: 20120810
  Receipt Date: 20170323
  Transmission Date: 20170429
  Serious: Yes (Hospitalization, Other)
  Sender: FDA-Public Use
  Company Number: BR-009507513-1208BRA002652

PATIENT
  Age: 64 Year
  Sex: Female
  Weight: 89 kg

DRUGS (13)
  1. VANCOMYCIN [Concomitant]
     Active Substance: VANCOMYCIN
     Indication: BACTERIAL INFECTION
     Dosage: UNK, UNKNOWN
     Route: 065
     Dates: start: 20100728, end: 20100921
  2. MEROPENEM. [Concomitant]
     Active Substance: MEROPENEM
     Indication: BACTERIAL SEPSIS
     Dosage: UNK
     Dates: start: 20100908
  3. CEFTAZIDIME. [Concomitant]
     Active Substance: CEFTAZIDIME
     Indication: PNEUMONIA
  4. MEROPENEM. [Concomitant]
     Active Substance: MEROPENEM
     Indication: PNEUMONIA
  5. VANCOMYCIN [Concomitant]
     Active Substance: VANCOMYCIN
     Indication: URINARY TRACT INFECTION
  6. RIFAMPIN. [Concomitant]
     Active Substance: RIFAMPIN
     Indication: BACTERIAL INFECTION
     Dosage: UNK UNK, UNKNOWN
     Route: 065
     Dates: start: 20100728, end: 20100905
  7. RIFAMPIN. [Concomitant]
     Active Substance: RIFAMPIN
     Indication: URINARY TRACT INFECTION
  8. CEFTAZIDIME. [Concomitant]
     Active Substance: CEFTAZIDIME
     Indication: SEPSIS
     Dosage: UNK, UNKNOWN
     Route: 065
     Dates: start: 20100830, end: 20100902
  9. DIAZEPAM. [Concomitant]
     Active Substance: DIAZEPAM
     Dosage: UNK
     Dates: start: 20100922
  10. IMIPENEM AND CILASTATIN [Suspect]
     Active Substance: CILASTATIN SODIUM\IMIPENEM
     Indication: BACTERIAL SEPSIS
     Dosage: UNK, UNKNOWN
     Route: 065
     Dates: start: 20100902, end: 20100908
  11. IMIPENEM AND CILASTATIN [Suspect]
     Active Substance: CILASTATIN SODIUM\IMIPENEM
     Indication: PNEUMONIA
  12. SULFASALAZINE. [Concomitant]
     Active Substance: SULFASALAZINE
     Indication: RHEUMATOID ARTHRITIS
     Dosage: 2 G, UNK
     Route: 048
     Dates: start: 20101104, end: 20120725
  13. PREDNISONE. [Concomitant]
     Active Substance: PREDNISONE
     Indication: RHEUMATOID ARTHRITIS
     Dosage: 20 MG, QD
     Route: 048
     Dates: start: 20100317, end: 20120725

REACTIONS (8)
  - Cerebral atrophy [Unknown]
  - Sinusitis [Unknown]
  - Oral candidiasis [Unknown]
  - Altered state of consciousness [Unknown]
  - Gliosis [Unknown]
  - Seizure [Recovered/Resolved]
  - Pyrexia [Unknown]
  - Hallucination [Recovered/Resolved]

NARRATIVE: CASE EVENT DATE: 20100903
